FAERS Safety Report 6424216-8 (Version None)
Quarter: 2009Q4

REPORT INFORMATION
  Report Type: 
  Country: None (occurrence: None)
  Receive Date: 20091102
  Receipt Date: 20091022
  Transmission Date: 20100525
  Serious: Yes (Other)
  Sender: FDA-Public Use
  Company Number: SE-AMGEN-UK370701

PATIENT
  Sex: Female
  Weight: 70 kg

DRUGS (6)
  1. VECTIBIX [Suspect]
     Indication: COLORECTAL CANCER
     Route: 042
     Dates: start: 20091014
  2. CAMPTOSAR [Concomitant]
     Route: 042
     Dates: start: 20091014
  3. ACETAMINOPHEN [Concomitant]
     Route: 065
  4. TROMBYL [Concomitant]
     Route: 065
  5. OMEPRAZOLE [Concomitant]
     Route: 065
  6. VENTOLIN [Concomitant]
     Route: 065

REACTIONS (9)
  - ASTHMA [None]
  - DYSPNOEA [None]
  - GENERALISED ERYTHEMA [None]
  - HYPERSENSITIVITY [None]
  - NASAL CONGESTION [None]
  - OROPHARYNGEAL BLISTERING [None]
  - RASH PUSTULAR [None]
  - SKIN REACTION [None]
  - THROAT IRRITATION [None]
